FAERS Safety Report 19899821 (Version 1)
Quarter: 2021Q3

REPORT INFORMATION
  Report Type: Spontaneous
  Country: DE (occurrence: DE)
  Receive Date: 20210929
  Receipt Date: 20210929
  Transmission Date: 20211014
  Serious: Yes (Hospitalization)
  Sender: FDA-Public Use
  Company Number: DE-MYLANLABS-2021M1066550

PATIENT
  Age: 71 Year
  Sex: Female

DRUGS (8)
  1. PANTOPRAZOL                        /01263201/ [Concomitant]
     Active Substance: PANTOPRAZOLE
     Dosage: 20 MILLIGRAM, QD (20 MG, 1?0?0?0, TABLETTEN)
     Route: 048
  2. AMITRIPTYLINE [Suspect]
     Active Substance: AMITRIPTYLINE
     Indication: PRODUCT USED FOR UNKNOWN INDICATION
     Dosage: 25 MILLIGRAM, BID (25 MG, 1?0?1?0, TABLETTEN)
     Route: 048
  3. LEVOTHYROXINENATRIUM TEVA [Concomitant]
     Dosage: 125 MICROGRAM, QD (125 ?G, 1?0?0?0, TABLETTEN)
     Route: 048
  4. CANDESARTAN/HYDROCHLOROTHIAZIDE [Suspect]
     Active Substance: CANDESARTAN CILEXETIL\HYDROCHLOROTHIAZIDE
     Indication: PRODUCT USED FOR UNKNOWN INDICATION
     Dosage: 16|12.5 MG, 1?0?0?0, TABLETTEN
     Route: 048
  5. TORASEMID [Concomitant]
     Active Substance: TORSEMIDE
     Dosage: 5 MILLIGRAM, QD (5 MG, 1?0?0?0, TABLETTEN)
     Route: 048
  6. BISOPROLOL [Concomitant]
     Active Substance: BISOPROLOL
     Dosage: 5 MILLIGRAM, QD (5 MG, 1?0?0?0, TABLETTEN)
     Route: 048
  7. AMIODARONE MYLAN [Suspect]
     Active Substance: AMIODARONE
     Indication: PRODUCT USED FOR UNKNOWN INDICATION
     Dosage: 200 MILLIGRAM, TID (200 MG, 1?1?1?0, TABLETTEN)
     Route: 048
  8. EDOXABAN [Concomitant]
     Active Substance: EDOXABAN TOSYLATE
     Dosage: 60 MILLIGRAM, QD (60 MG, 1?0?0?0, TABLETTEN)
     Route: 048

REACTIONS (2)
  - Vomiting [Unknown]
  - Angina pectoris [Unknown]
